FAERS Safety Report 16351588 (Version 9)
Quarter: 2020Q2

REPORT INFORMATION
  Report Type: Report from Study
  Country: CA (occurrence: CA)
  Receive Date: 20190524
  Receipt Date: 20200629
  Transmission Date: 20200713
  Serious: Yes (Hospitalization, Other)
  Sender: FDA-Public Use
  Company Number: CA-ROCHE-1575363

PATIENT
  Age: 68 Year
  Sex: Male
  Weight: 78 kg

DRUGS (27)
  1. ACTEMRA [Suspect]
     Active Substance: TOCILIZUMAB
     Dosage: ON HOLD
     Route: 042
     Dates: start: 20180110
  2. METOPROLOL. [Concomitant]
     Active Substance: METOPROLOL
  3. SALBUTAMOL [Concomitant]
     Active Substance: ALBUTEROL
  4. MORPHINE [Concomitant]
     Active Substance: MORPHINE
  5. CANDESARTAN. [Concomitant]
     Active Substance: CANDESARTAN
  6. ACTEMRA [Suspect]
     Active Substance: TOCILIZUMAB
     Route: 042
     Dates: start: 20170117, end: 20171212
  7. ACETYLSALICYLIC ACID [Concomitant]
     Active Substance: ASPIRIN
     Dosage: ONGOING
     Route: 065
  8. IMURAN [Concomitant]
     Active Substance: AZATHIOPRINE
     Dosage: ONGOING
     Route: 048
  9. ACTEMRA [Suspect]
     Active Substance: TOCILIZUMAB
     Indication: RHEUMATOID ARTHRITIS
     Route: 042
     Dates: start: 20150409, end: 20150409
  10. ACTEMRA [Suspect]
     Active Substance: TOCILIZUMAB
     Route: 042
     Dates: start: 20150514, end: 20160510
  11. PLAQUENIL [Concomitant]
     Active Substance: HYDROXYCHLOROQUINE SULFATE
     Route: 048
  12. ACTEMRA [Suspect]
     Active Substance: TOCILIZUMAB
     Route: 042
     Dates: start: 20160607, end: 20161220
  13. ACTEMRA [Suspect]
     Active Substance: TOCILIZUMAB
     Route: 042
     Dates: start: 20170117, end: 20171212
  14. DOCUSATE SODIUM. [Concomitant]
     Active Substance: DOCUSATE SODIUM
  15. TYLENOL WITH CODEINE [Concomitant]
     Active Substance: ACETAMINOPHEN\CODEINE PHOSPHATE
  16. SPIRIVA [Concomitant]
     Active Substance: TIOTROPIUM BROMIDE MONOHYDRATE
  17. FUCIDIN [FUSIDIC ACID] [Concomitant]
     Active Substance: FUSIDIC ACID
  18. CLOPIDOGREL [Concomitant]
     Active Substance: CLOPIDOGREL BISULFATE
  19. CITALOPRAM [Concomitant]
     Active Substance: CITALOPRAM HYDROBROMIDE
  20. TOPICORT [Concomitant]
     Active Substance: DESOXIMETASONE
     Indication: HYPERKERATOSIS
  21. CALCIUM CARBONATE. [Concomitant]
     Active Substance: CALCIUM CARBONATE
  22. TYLENOL [Concomitant]
     Active Substance: ACETAMINOPHEN
     Dosage: ONGOING
     Route: 065
  23. VIT D [Concomitant]
     Active Substance: VITAMIN D NOS
  24. RAMIPRIL. [Concomitant]
     Active Substance: RAMIPRIL
  25. NITROGLYCERIN. [Concomitant]
     Active Substance: NITROGLYCERIN
  26. SIMVASTATIN. [Concomitant]
     Active Substance: SIMVASTATIN
  27. NAPROXEN. [Concomitant]
     Active Substance: NAPROXEN

REACTIONS (40)
  - Limb injury [Recovered/Resolved]
  - Musculoskeletal stiffness [Recovering/Resolving]
  - Wheezing [Unknown]
  - Pain [Recovering/Resolving]
  - Pruritus [Unknown]
  - Alopecia [Unknown]
  - Abdominal pain [Recovering/Resolving]
  - Ill-defined disorder [Unknown]
  - Peripheral swelling [Not Recovered/Not Resolved]
  - Product use issue [Unknown]
  - Peripheral swelling [Recovering/Resolving]
  - Pneumonia [Recovering/Resolving]
  - Myocardial infarction [Unknown]
  - Cardiac disorder [Unknown]
  - Infusion related reaction [Unknown]
  - Disability assessment scale score increased [Recovering/Resolving]
  - Clostridium difficile infection [Recovered/Resolved]
  - Mouth injury [Recovering/Resolving]
  - Blood pressure diastolic decreased [Unknown]
  - Rash [Not Recovered/Not Resolved]
  - Skin ulcer [Recovering/Resolving]
  - Acne [Not Recovered/Not Resolved]
  - Dizziness [Unknown]
  - Cholecystitis infective [Unknown]
  - Hypotension [Unknown]
  - Blood pressure systolic increased [Unknown]
  - Rash [Unknown]
  - Oxygen saturation decreased [Unknown]
  - Dyspnoea [Unknown]
  - Skin ulcer [Recovered/Resolved]
  - Blood pressure fluctuation [Unknown]
  - Urinary tract infection [Unknown]
  - Cardiomegaly [Unknown]
  - Rhinorrhoea [Recovered/Resolved]
  - Rash [Recovered/Resolved]
  - Hypertension [Unknown]
  - Lung disorder [Unknown]
  - Urosepsis [Unknown]
  - Weight increased [Recovering/Resolving]
  - Off label use [Unknown]

NARRATIVE: CASE EVENT DATE: 201505
